FAERS Safety Report 9032565 (Version 2)
Quarter: 2013Q1

REPORT INFORMATION
  Report Type: Spontaneous
  Country: US (occurrence: None)
  Receive Date: 20130109
  Receipt Date: 20130111
  Transmission Date: 20140127
  Serious: Yes (Death)
  Sender: FDA-Public Use
  Company Number: ADR-2013-00016

PATIENT
  Age: 45 Year
  Sex: Female

DRUGS (3)
  1. LIORESAL [Suspect]
     Indication: CANCER PAIN
  2. DILAUDID (HYDROMORPHONE) [Concomitant]
  3. BUPIVACAINE [Concomitant]

REACTIONS (2)
  - Breast cancer [None]
  - Malignant neoplasm progression [None]
